FAERS Safety Report 24760338 (Version 1)
Quarter: 2024Q4

REPORT INFORMATION
  Report Type: Spontaneous
  Country: BR (occurrence: BR)
  Receive Date: 20241220
  Receipt Date: 20241220
  Transmission Date: 20250115
  Serious: Yes (Hospitalization, Other)
  Sender: NOVARTIS
  Company Number: BR-002147023-NVSC2024BR241521

PATIENT
  Sex: Female
  Weight: 77 kg

DRUGS (6)
  1. TAFINLAR [Suspect]
     Active Substance: DABRAFENIB MESYLATE
     Indication: Hepatic cancer
     Dosage: 2 DOSAGE FORM, Q12H (4 TABLETS A DAY) (WITH 120 CAPSULES)
     Route: 065
     Dates: start: 20241024
  2. TAFINLAR [Suspect]
     Active Substance: DABRAFENIB MESYLATE
     Indication: Neoplasm malignant
  3. TAFINLAR [Suspect]
     Active Substance: DABRAFENIB MESYLATE
     Indication: Malignant neoplasm of renal pelvis
  4. MEKINIST [Suspect]
     Active Substance: TRAMETINIB DIMETHYL SULFOXIDE
     Indication: Hepatic cancer
     Dosage: 1 DOSAGE FORM, QD (1 TABLET A DAY) (WITH 30 COATED TABLETS)
     Route: 065
     Dates: start: 20241024
  5. MEKINIST [Suspect]
     Active Substance: TRAMETINIB DIMETHYL SULFOXIDE
     Indication: Neoplasm malignant
  6. MEKINIST [Suspect]
     Active Substance: TRAMETINIB DIMETHYL SULFOXIDE
     Indication: Malignant neoplasm of renal pelvis

REACTIONS (5)
  - Laryngeal oedema [Unknown]
  - Oedema mouth [Unknown]
  - Tachycardia [Unknown]
  - Hypotension [Unknown]
  - Anaphylactic shock [Unknown]

NARRATIVE: CASE EVENT DATE: 20240101
